FAERS Safety Report 21043816 (Version 1)
Quarter: 2022Q3

REPORT INFORMATION
  Report Type: Spontaneous
  Country: US (occurrence: None)
  Receive Date: 20220701
  Receipt Date: 20220701
  Transmission Date: 20221027
  Serious: No
  Sender: FDA-Public Use
  Company Number: None

PATIENT
  Age: 38 Year
  Sex: Female
  Weight: 144 kg

DRUGS (2)
  1. ATIVAN [Suspect]
     Active Substance: LORAZEPAM
     Indication: Claustrophobia
     Dates: start: 20220630
  2. TYLENOL [Concomitant]
     Active Substance: ACETAMINOPHEN

REACTIONS (5)
  - Pyrexia [None]
  - Headache [None]
  - Chills [None]
  - Pain [None]
  - Diarrhoea [None]

NARRATIVE: CASE EVENT DATE: 20220701
